FAERS Safety Report 22785159 (Version 2)
Quarter: 2024Q3

REPORT INFORMATION
  Report Type: Spontaneous
  Country: US (occurrence: US)
  Receive Date: 20230804
  Receipt Date: 20240808
  Transmission Date: 20241017
  Serious: No
  Sender: OTSUKA
  Company Number: US-OTSUKA-2022_055277

PATIENT
  Sex: Female

DRUGS (1)
  1. ABILIFY [Suspect]
     Active Substance: ARIPIPRAZOLE
     Indication: Bipolar I disorder
     Dosage: UNK
     Route: 048
     Dates: start: 2007, end: 2019

REACTIONS (6)
  - Affective disorder [Unknown]
  - Indifference [Recovering/Resolving]
  - Emotional poverty [Recovering/Resolving]
  - Sluggishness [Recovering/Resolving]
  - Fatigue [Recovering/Resolving]
  - Therapy cessation [Recovering/Resolving]
